FAERS Safety Report 7151019-1 (Version None)
Quarter: 2010Q4

REPORT INFORMATION
  Report Type: 
  Country: None (occurrence: None)
  Receive Date: 20101210
  Receipt Date: 20101207
  Transmission Date: 20110411
  Serious: Yes (Hospitalization)
  Sender: FDA-Public Use
  Company Number: B0678877A

PATIENT
  Sex: Male

DRUGS (9)
  1. AUGMENTIN [Suspect]
     Indication: BRONCHITIS
     Route: 048
     Dates: start: 20100812, end: 20100831
  2. PREVISCAN [Suspect]
     Route: 048
     Dates: start: 20090101
  3. EFFERALGAN [Suspect]
     Indication: BRONCHITIS
     Route: 048
     Dates: start: 20100812, end: 20100812
  4. DEPAKENE [Concomitant]
     Route: 065
     Dates: start: 19600101
  5. LASIX [Concomitant]
     Route: 065
     Dates: start: 20090101
  6. TAHOR [Concomitant]
     Route: 065
     Dates: start: 20090101
  7. PERINDOPRIL [Concomitant]
     Route: 065
     Dates: start: 20090101
  8. SULFARLEM [Concomitant]
     Route: 065
  9. EXOMUC [Concomitant]
     Indication: BRONCHITIS
     Route: 065
     Dates: start: 20100812

REACTIONS (5)
  - ANAEMIA [None]
  - DRUG INTERACTION [None]
  - HAEMOPTYSIS [None]
  - INTERNATIONAL NORMALISED RATIO INCREASED [None]
  - OVERDOSE [None]
